FAERS Safety Report 4968404-6 (Version None)
Quarter: 2006Q2

REPORT INFORMATION
  Report Type: 
  Country: None (occurrence: None)
  Receive Date: 20060410
  Receipt Date: 20050720
  Transmission Date: 20061013
  Serious: Yes (Hospitalization)
  Sender: FDA-Public Use
  Company Number: US-MERCK-0507USA03231B1

PATIENT
  Age: 0 Day
  Sex: Male
  Weight: 1 kg

DRUGS (8)
  1. SINGULAIR [Suspect]
     Indication: ASTHMA
     Dates: start: 20050101, end: 20050101
  2. SINGULAIR [Suspect]
     Dates: start: 20050101, end: 20050401
  3. SINGULAIR [Suspect]
     Dates: start: 20040101
  4. PREDNISONE [Concomitant]
  5. ALBUTEROL [Concomitant]
  6. TESSALON [Concomitant]
  7. COUGH, COLD, AND FLU THERAPIES (UNSPECIFIED) [Concomitant]
  8. GUAIFENESIN [Concomitant]

REACTIONS (1)
  - ANAEMIA [None]
